FAERS Safety Report 5843489-3 (Version None)
Quarter: 2008Q3

REPORT INFORMATION
  Report Type: 
  Country: None (occurrence: None)
  Receive Date: 20080808
  Receipt Date: 20080724
  Transmission Date: 20090109
  Serious: Yes (Other)
  Sender: FDA-Public Use
  Company Number: 2008SP013193

PATIENT
  Age: 55 Year
  Sex: Female

DRUGS (2)
  1. REBETOL [Suspect]
     Indication: HEPATITIS C
     Dates: start: 20051109, end: 20060118
  2. PEGASYS [Suspect]
     Indication: HEPATITIS C
     Dates: start: 20051109, end: 20060118

REACTIONS (3)
  - DYSPNOEA [None]
  - PRURITUS [None]
  - URTICARIA [None]
